FAERS Safety Report 4503834-8 (Version None)
Quarter: 2004Q4

REPORT INFORMATION
  Report Type: 
  Country: None (occurrence: None)
  Receive Date: 20041115
  Receipt Date: 20041109
  Transmission Date: 20050328
  Serious: Yes (Hospitalization, Disabling)
  Sender: FDA-Public Use
  Company Number: 2004-10-0584

PATIENT
  Age: 71 Year
  Sex: Female

DRUGS (7)
  1. PEG-INTRON [Suspect]
     Indication: HEPATITIS C
     Dosage: 80 MCG SUBCUTANEOUS
     Route: 058
     Dates: start: 20040917, end: 20041001
  2. REBETOL [Suspect]
     Indication: HEPATITIS C
     Dosage: 80 MG QD ORAL
     Route: 048
     Dates: start: 20040917, end: 20041001
  3. AMLODIPINE BESYLATE [Concomitant]
  4. STARLIX [Concomitant]
  5. PIRACETAM [Concomitant]
  6. HEPABIONTA TABLET [Concomitant]
  7. COENZYME Q10 [Concomitant]

REACTIONS (1)
  - CEREBROVASCULAR ACCIDENT [None]
